FAERS Safety Report 10431584 (Version 1)
Quarter: 2014Q3

REPORT INFORMATION
  Report Type: Spontaneous
  Country: US (occurrence: None)
  Receive Date: 20140903
  Receipt Date: 20140903
  Transmission Date: 20150326
  Serious: Yes (Hospitalization)
  Sender: FDA-Public Use
  Company Number: 2014SCAL000060

PATIENT
  Age: 53 Year
  Sex: Male

DRUGS (1)
  1. DONEPEZIL HYDROCHLORIDE 10 MG [Suspect]
     Active Substance: DONEPEZIL HYDROCHLORIDE
     Indication: PRODUCT USED FOR UNKNOWN INDICATION
     Dosage: 20 TABLETS

REACTIONS (12)
  - Somnolence [None]
  - Accidental exposure to product [None]
  - Vomiting [None]
  - Sinus bradycardia [None]
  - Confusional state [None]
  - Feeling cold [None]
  - Pulmonary congestion [None]
  - Hyperhidrosis [None]
  - Overdose [None]
  - Malaise [None]
  - Haemodynamic instability [None]
  - Nausea [None]
